FAERS Safety Report 10974537 (Version 1)
Quarter: 2015Q2

REPORT INFORMATION
  Report Type: Spontaneous
  Country: DE (occurrence: DE)
  Receive Date: 20150401
  Receipt Date: 20150401
  Transmission Date: 20150821
  Serious: Yes (Hospitalization)
  Sender: FDA-Public Use
  Company Number: GXKR2015DE001775

PATIENT
  Age: 15 Year
  Sex: Male

DRUGS (3)
  1. FLUOXETINE [Suspect]
     Active Substance: FLUOXETINE\FLUOXETINE HYDROCHLORIDE
     Indication: DEPRESSION
     Dosage: 10 MG ONCE PER DAY
     Route: 048
  2. DEXAMFETAMINE SULFATE [Concomitant]
     Route: 065
  3. DIPIPERON [Concomitant]
     Active Substance: PIPAMPERONE
     Route: 065

REACTIONS (1)
  - Polydipsia [Unknown]
